FAERS Safety Report 8502081-2 (Version None)
Quarter: 2012Q3

REPORT INFORMATION
  Report Type: 
  Country: None (occurrence: None)
  Receive Date: 20120711
  Receipt Date: 20120622
  Transmission Date: 20120928
  Serious: No
  Sender: FDA-Public Use
  Company Number: US-JNJFOC-20120612395

PATIENT
  Sex: Female
  Weight: 61.24 kg

DRUGS (2)
  1. FLUTICASONE PROPIONATE [Concomitant]
     Indication: SINUSITIS
     Dosage: 2 SPRAYS
     Dates: start: 20110101
  2. REMICADE [Suspect]
     Indication: RHEUMATOID ARTHRITIS
     Route: 042
     Dates: start: 20110801, end: 20120301

REACTIONS (4)
  - TOOTH EXTRACTION [None]
  - EAR INFECTION [None]
  - WEIGHT INCREASED [None]
  - SINUSITIS [None]
